FAERS Safety Report 9515752 (Version 1)
Quarter: 2013Q3

REPORT INFORMATION
  Report Type: Spontaneous
  Country: BR (occurrence: BR)
  Receive Date: 20130911
  Receipt Date: 20130911
  Transmission Date: 20140515
  Serious: Yes (Death, Congenital Anomaly)
  Sender: FDA-Public Use
  Company Number: BR-PFIZER INC-2013259691

PATIENT
  Sex: 0

DRUGS (1)
  1. DEPO-PROVERA [Suspect]
     Indication: CONTRACEPTION
     Dosage: 150 MG, SINGLE
     Route: 064
     Dates: start: 2003, end: 2003

REACTIONS (2)
  - Maternal exposure during pregnancy [Fatal]
  - Anencephaly [Fatal]
